FAERS Safety Report 8882485 (Version 4)
Quarter: 2013Q2

REPORT INFORMATION
  Report Type: Spontaneous
  Country: US (occurrence: US)
  Receive Date: 20121103
  Receipt Date: 20130513
  Transmission Date: 20140414
  Serious: Yes (Hospitalization, Other)
  Sender: FDA-Public Use
  Company Number: US-MERCK-2012SP009363

PATIENT
  Age: 66 Year
  Sex: Female

DRUGS (5)
  1. PEGINTRON [Suspect]
     Indication: HEPATITIS C
     Dosage: 120 MICROGRAM, QW ON FRIDAY
     Dates: start: 20111125, end: 20120518
  2. PEGINTRON [Suspect]
     Dosage: UNK
     Dates: start: 20120928
  3. REBETOL [Suspect]
     Indication: HEPATITIS C
     Dosage: 4200 MG
     Route: 065
     Dates: start: 20111125, end: 20120518
  4. REBETOL [Suspect]
     Dosage: UNK
     Dates: start: 20120928
  5. VICTRELIS [Suspect]
     Indication: HEPATITIS C
     Dosage: 2,400 MG, UNKNOWN
     Route: 065
     Dates: start: 20111224, end: 20120518

REACTIONS (53)
  - Loss of consciousness [Unknown]
  - Coma [Unknown]
  - Anaemia [Recovered/Resolved]
  - Mental status changes [Recovered/Resolved]
  - Hyponatraemia [Recovered/Resolved]
  - Blood count abnormal [Unknown]
  - Cataract [Unknown]
  - Coma [Unknown]
  - Loss of consciousness [Unknown]
  - Microcytic anaemia [Recovering/Resolving]
  - Fall [Unknown]
  - Abasia [Unknown]
  - Feeling abnormal [Unknown]
  - Memory impairment [Unknown]
  - Mental impairment [Unknown]
  - Malaise [Unknown]
  - Nasopharyngitis [Unknown]
  - Nervousness [Unknown]
  - Blood iron increased [Unknown]
  - Balance disorder [Unknown]
  - Weight increased [Unknown]
  - Blood disorder [Unknown]
  - Amnesia [Unknown]
  - Fall [Unknown]
  - Abasia [Unknown]
  - Weight decreased [Unknown]
  - Insomnia [Unknown]
  - Fatigue [Unknown]
  - Asthenia [Unknown]
  - Asthenia [Unknown]
  - Drug ineffective [Unknown]
  - Anaemia [Unknown]
  - Fall [Unknown]
  - Lethargy [Unknown]
  - Leukopenia [Unknown]
  - Hypokalaemia [Unknown]
  - Hypomagnesaemia [Unknown]
  - Decreased activity [Unknown]
  - Asthenia [Unknown]
  - Fall [Unknown]
  - Syncope [Unknown]
  - Foaming at mouth [Unknown]
  - Sleep disorder [Unknown]
  - Mucosal dryness [Unknown]
  - Fatigue [Unknown]
  - Asthenia [Unknown]
  - Productive cough [Unknown]
  - Fatigue [Unknown]
  - Dizziness [Unknown]
  - Syncope [Unknown]
  - Muscular weakness [Unknown]
  - Dry mouth [Unknown]
  - Therapeutic response decreased [Unknown]
